FAERS Safety Report 10191126 (Version 1)
Quarter: 2014Q2

REPORT INFORMATION
  Report Type: Report from Study
  Country: DE (occurrence: DE)
  Receive Date: 20140523
  Receipt Date: 20140523
  Transmission Date: 20141212
  Serious: Yes (Other)
  Sender: FDA-Public Use
  Company Number: DE-CELGENEUS-062-50794-13111613

PATIENT
  Age: 54 Year
  Sex: Female

DRUGS (15)
  1. PANTOPRAZOL [Concomitant]
     Indication: PRODUCT USED FOR UNKNOWN INDICATION
     Dosage: 20 MILLIGRAM
     Route: 065
  2. LEVEMIR [Concomitant]
     Indication: PRODUCT USED FOR UNKNOWN INDICATION
     Route: 065
  3. HUMALOG [Concomitant]
     Indication: PRODUCT USED FOR UNKNOWN INDICATION
     Route: 065
  4. LEVOTHYROXINE [Concomitant]
     Indication: PRODUCT USED FOR UNKNOWN INDICATION
     Dosage: 125 MICROGRAM
     Route: 065
  5. ELIDEL [Concomitant]
     Indication: PRODUCT USED FOR UNKNOWN INDICATION
     Dosage: 10MG/G
     Route: 061
  6. VIDAZA [Suspect]
     Indication: ACUTE MYELOID LEUKAEMIA
     Dosage: 10.7143 MILLIGRAM/SQ. METER
     Route: 058
     Dates: start: 201003
  7. VIDAZA [Suspect]
     Route: 058
     Dates: start: 20100409, end: 20100413
  8. VIDAZA [Suspect]
     Route: 058
     Dates: start: 20100517, end: 20100523
  9. VIDAZA [Suspect]
     Route: 058
     Dates: start: 20100715, end: 20100721
  10. VIDAZA [Suspect]
     Route: 058
     Dates: start: 201108, end: 201110
  11. VFEND [Concomitant]
     Indication: PRODUCT USED FOR UNKNOWN INDICATION
     Route: 065
     Dates: end: 201006
  12. AMPHO-MORONAL [Concomitant]
     Indication: PRODUCT USED FOR UNKNOWN INDICATION
     Dosage: 15 MILLILITER
     Route: 065
  13. CALCIVIT [Concomitant]
     Indication: PRODUCT USED FOR UNKNOWN INDICATION
     Route: 048
  14. ACYCLOVIR [Concomitant]
     Indication: PRODUCT USED FOR UNKNOWN INDICATION
     Dosage: 600 MILLIGRAM
     Route: 065
  15. COTRIMOXAZOLE [Concomitant]
     Indication: PRODUCT USED FOR UNKNOWN INDICATION
     Dosage: 960 MILLIGRAM
     Route: 065

REACTIONS (7)
  - Acute graft versus host disease in intestine [Recovered/Resolved]
  - Graft versus host disease [Recovered/Resolved]
  - Graft versus host disease [Recovered/Resolved]
  - Respiratory tract infection [Unknown]
  - Chronic sinusitis [Not Recovered/Not Resolved]
  - Thrombocytopenia [Unknown]
  - Neutropenia [Unknown]
